FAERS Safety Report 10585248 (Version 2)
Quarter: 2014Q4

REPORT INFORMATION
  Report Type: Spontaneous
  Country: HR (occurrence: HR)
  Receive Date: 20141114
  Receipt Date: 20141224
  Transmission Date: 20150529
  Serious: Yes (Other)
  Sender: FDA-Public Use
  Company Number: HR-AMGEN-HRVSP2014087395

PATIENT
  Age: 68 Year
  Sex: Female

DRUGS (3)
  1. PROLIA [Suspect]
     Active Substance: DENOSUMAB
     Indication: OSTEOPOROSIS POSTMENOPAUSAL
     Dosage: 60 MG, Q6MO
     Route: 058
  2. NEXIUM [Concomitant]
     Active Substance: ESOMEPRAZOLE MAGNESIUM
     Dosage: 2X20 MG
  3. HYGROTON [Concomitant]
     Active Substance: CHLORTHALIDONE
     Dosage: 3X1 TBL

REACTIONS (15)
  - Radiculopathy [Not Recovered/Not Resolved]
  - Intervertebral disc degeneration [Unknown]
  - Insomnia [Not Recovered/Not Resolved]
  - Osteoporosis [Unknown]
  - Pain [Unknown]
  - Osteoarthritis [Unknown]
  - Malaise [Unknown]
  - Gait disturbance [Unknown]
  - Headache [Not Recovered/Not Resolved]
  - Pain in extremity [Not Recovered/Not Resolved]
  - Arthralgia [Unknown]
  - Osteopenia [Unknown]
  - Foot deformity [Unknown]
  - Spinal deformity [Unknown]
  - Musculoskeletal pain [Not Recovered/Not Resolved]

NARRATIVE: CASE EVENT DATE: 2014
